FAERS Safety Report 24891394 (Version 1)
Quarter: 2025Q1

REPORT INFORMATION
  Report Type: Spontaneous
  Country: FR (occurrence: FR)
  Receive Date: 20250127
  Receipt Date: 20250127
  Transmission Date: 20250408
  Serious: Yes (Other)
  Sender: MERCK KGAA
  Company Number: FR-Merck Healthcare KGaA-2025003306

PATIENT

DRUGS (2)
  1. LEVOTHYROXINE [Suspect]
     Active Substance: LEVOTHYROXINE
     Indication: Post procedural hypothyroidism
  2. CALCIUM [Concomitant]
     Active Substance: CALCIUM
     Indication: Parathyroid disorder

REACTIONS (2)
  - Hypocalcaemia [Unknown]
  - Paralysis [Unknown]
